FAERS Safety Report 9149083 (Version 1)
Quarter: 2013Q1

REPORT INFORMATION
  Report Type: Spontaneous
  Country: US (occurrence: US)
  Receive Date: 20130308
  Receipt Date: 20130308
  Transmission Date: 20140127
  Serious: No
  Sender: FDA-Public Use
  Company Number: US-BAYER-2013-029318

PATIENT
  Sex: Female

DRUGS (2)
  1. ALEVE CAPLET/TABLET,MIDOL EXTENDED RELIEF CAPLET [Suspect]
     Dosage: 1 DF, ONCE
     Route: 048
     Dates: start: 201302, end: 201302
  2. WOMEN^S MULTI [Concomitant]
     Indication: PAIN

REACTIONS (2)
  - Palpitations [Recovered/Resolved]
  - Drug ineffective [Recovered/Resolved]
